FAERS Safety Report 6236628-6 (Version None)
Quarter: 2009Q2

REPORT INFORMATION
  Report Type: 
  Country: None (occurrence: None)
  Receive Date: 20090619
  Receipt Date: 20080808
  Transmission Date: 20091009
  Serious: No
  Sender: FDA-Public Use
  Company Number: US-ASTRAZENECA-2008UW16258

PATIENT
  Age: 46 Year
  Sex: Female
  Weight: 99 kg

DRUGS (2)
  1. ATACAND [Suspect]
     Indication: HYPERTENSION
     Route: 048
     Dates: start: 20080301
  2. ZITHROMAX [Concomitant]
     Indication: INFLUENZA LIKE ILLNESS
     Dates: start: 20080501

REACTIONS (4)
  - AGEUSIA [None]
  - ALOPECIA [None]
  - ANOSMIA [None]
  - INFLUENZA LIKE ILLNESS [None]
